FAERS Safety Report 9331670 (Version 1)
Quarter: 2013Q2

REPORT INFORMATION
  Report Type: Spontaneous
  Country: US (occurrence: US)
  Receive Date: 20130605
  Receipt Date: 20130605
  Transmission Date: 20140414
  Serious: No
  Sender: FDA-Public Use
  Company Number: US-PFIZER INC-2013170375

PATIENT
  Age: 43 Year
  Sex: Female
  Weight: 52.15 kg

DRUGS (1)
  1. NICOTROL INHALER [Suspect]
     Indication: SMOKING CESSATION THERAPY
     Dosage: USING 2-3 CARTRIDGES IN A DAY
     Dates: start: 1999

REACTIONS (1)
  - Drug ineffective [Unknown]
